FAERS Safety Report 4368213-5 (Version None)
Quarter: 2004Q2

REPORT INFORMATION
  Report Type: 
  Country: None (occurrence: None)
  Receive Date: 20040527
  Receipt Date: 20040511
  Transmission Date: 20050107
  Serious: Yes (Hospitalization)
  Sender: FDA-Public Use
  Company Number: 2004-BP-03657NB

PATIENT
  Age: 75 Year
  Sex: Male

DRUGS (8)
  1. MICARDIS [Suspect]
     Indication: HYPERTENSION
     Route: 048
     Dates: start: 20040405, end: 20040430
  2. ADALAT-CR (TAD) [Concomitant]
  3. EBRANTIL (URAPIDIL) (KA) [Concomitant]
  4. MUCODYNE (CARBOCISTEINE) [Concomitant]
  5. LOXONIN (LOXOPROFEN SODIUM) [Concomitant]
  6. TRANSAMIN (TRANEXAMIC ACID) [Concomitant]
  7. CALONAL (PARACETAMOL) [Concomitant]
  8. CEFZON (CEFDINIR) (KA) [Concomitant]

REACTIONS (1)
  - LIVER DISORDER [None]
